FAERS Safety Report 7986009-X (Version None)
Quarter: 2011Q4

REPORT INFORMATION
  Report Type: 
  Country: None (occurrence: None)
  Receive Date: 20111216
  Receipt Date: 20111206
  Transmission Date: 20120403
  Serious: Yes (Other)
  Sender: FDA-Public Use
  Company Number: TR-MILLENNIUM PHARMACEUTICALS, INC.-2011-05928

PATIENT

DRUGS (8)
  1. VELCADE [Suspect]
     Indication: MULTIPLE MYELOMA
     Dosage: 2.2 MG, UNK
     Route: 042
     Dates: start: 20110419, end: 20110901
  2. ALLOPURINOL [Concomitant]
  3. DEXAMETHASONE [Concomitant]
     Indication: MULTIPLE MYELOMA
     Dosage: 40 MG, UNK
     Dates: start: 20110419
  4. GRANISETRON [Concomitant]
     Dosage: 1 UNK, UNK
  5. GRANISETRON [Concomitant]
     Dosage: 3 MG, UNK
  6. ZOLEDRONIC ACID [Concomitant]
     Indication: MULTIPLE MYELOMA
     Dosage: 4 MG, UNK
     Dates: start: 20110419
  7. GRANISETRON [Concomitant]
     Dosage: 2 UNK, UNK
  8. ONDANSETRON [Concomitant]
     Dosage: UNK

REACTIONS (2)
  - OPTIC NERVE INJURY [None]
  - DIPLOPIA [None]
